FAERS Safety Report 25173137 (Version 1)
Quarter: 2025Q2

REPORT INFORMATION
  Report Type: Spontaneous
  Country: IT (occurrence: IT)
  Receive Date: 20250408
  Receipt Date: 20250408
  Transmission Date: 20250716
  Serious: Yes (Death, Hospitalization)
  Sender: BAYER
  Company Number: IT-BAYER-2025A045393

PATIENT
  Age: 48 Year
  Sex: Male

DRUGS (1)
  1. BETAFERON [Suspect]
     Active Substance: INTERFERON BETA-1B
     Indication: Multiple sclerosis
     Route: 058

REACTIONS (2)
  - Endocarditis [Fatal]
  - Septic pulmonary embolism [Fatal]
